FAERS Safety Report 15774363 (Version 1)
Quarter: 2018Q4

REPORT INFORMATION
  Report Type: Report from Study
  Country: IT (occurrence: IT)
  Receive Date: 20181229
  Receipt Date: 20181229
  Transmission Date: 20190205
  Serious: Yes (Life-Threatening, Hospitalization, Other)
  Sender: FDA-Public Use
  Company Number: IT-INDICUS PHARMA-000566

PATIENT
  Age: 84 Year
  Sex: Female

DRUGS (6)
  1. METFORMIN [Suspect]
     Active Substance: METFORMIN HYDROCHLORIDE
     Indication: TYPE 2 DIABETES MELLITUS
     Dosage: 850 MG T.I.D.
  2. OMEPRAZOLE. [Concomitant]
     Active Substance: OMEPRAZOLE
  3. GLICLAZIDE [Concomitant]
     Active Substance: GLICLAZIDE
  4. PREGABALIN. [Concomitant]
     Active Substance: PREGABALIN
  5. RAMIPRIL. [Concomitant]
     Active Substance: RAMIPRIL
  6. FUROSEMIDE. [Concomitant]
     Active Substance: FUROSEMIDE

REACTIONS (4)
  - Lactic acidosis [Unknown]
  - Acute myocardial infarction [Unknown]
  - Urinary tract infection [Unknown]
  - Acute kidney injury [Unknown]
